FAERS Safety Report 8859509 (Version 2)
Quarter: 2012Q4

REPORT INFORMATION
  Report Type: 
  Country: IN (occurrence: IN)
  Receive Date: 20121024
  Receipt Date: 20121220
  Transmission Date: 20130627
  Serious: Yes (Hospitalization)
  Sender: FDA-Public Use
  Company Number: IN-ASTRAZENECA-2012SE75457

PATIENT
  Age: 76 Year
  Sex: Male
  Weight: 70 kg

DRUGS (6)
  1. MERONEM [Suspect]
     Indication: UROSEPSIS
     Route: 042
     Dates: start: 20120915, end: 20120919
  2. AUGMENTIN [Concomitant]
     Indication: UROSEPSIS
     Route: 042
     Dates: start: 20120915
  3. PANTOCID [Concomitant]
     Indication: HYPERCHLORHYDRIA
     Dosage: DAILY
     Route: 042
     Dates: start: 20120915
  4. EMSET [Concomitant]
     Indication: VOMITING
     Dosage: DAILY
     Route: 042
     Dates: start: 20120915
  5. LASIX [Concomitant]
     Indication: URINARY TRACT DISORDER
     Dosage: TWO TIMES A DAY
     Route: 042
     Dates: start: 20120915
  6. NACL [Concomitant]
     Indication: INFUSION
     Route: 042

REACTIONS (2)
  - Haematuria [Not Recovered/Not Resolved]
  - Counterfeit drug administered [Not Recovered/Not Resolved]
